FAERS Safety Report 6010845-2 (Version None)
Quarter: 2008Q4

REPORT INFORMATION
  Report Type: 
  Country: None (occurrence: None)
  Receive Date: 20081218
  Receipt Date: 20081210
  Transmission Date: 20090506
  Serious: Yes (Hospitalization)
  Sender: FDA-Public Use
  Company Number: US-GILEAD-2008-0019209

PATIENT
  Sex: Female

DRUGS (18)
  1. LETAIRIS [Suspect]
     Indication: PULMONARY HYPERTENSION
     Route: 048
     Dates: start: 20080101, end: 20081203
  2. LOPRESSOR [Concomitant]
  3. WARFARIN SODIUM [Concomitant]
     Indication: COAGULOPATHY
     Dates: end: 20081101
  4. WARFARIN SODIUM [Concomitant]
     Dates: start: 20081101
  5. PHOSLO [Concomitant]
  6. HUMULIN [Concomitant]
  7. TRAMADOL HYDROCHLORIDE [Concomitant]
  8. DIPHENHYDRAMINE HCL [Concomitant]
  9. PHENAZOPYRIDINE HCL TAB [Concomitant]
  10. RENAL SOFTGEL [Concomitant]
  11. OMEPRAZOLE [Concomitant]
  12. SIMVASTATIN [Concomitant]
  13. ASPIRIN [Concomitant]
  14. ACETAMINOPHEN W/ CODEINE [Concomitant]
  15. ARTIFICIAL TEARS [Concomitant]
  16. AMMONIUM LACTATE [Concomitant]
  17. METOCLOPRAMIDE [Concomitant]
  18. NITROGLYCERIN [Concomitant]

REACTIONS (1)
  - PLEURAL EFFUSION [None]
